FAERS Safety Report 8047037-1 (Version None)
Quarter: 2012Q1

REPORT INFORMATION
  Report Type: 
  Country: None (occurrence: None)
  Receive Date: 20120116
  Receipt Date: 20120103
  Transmission Date: 20120608
  Serious: Yes (Other)
  Sender: FDA-Public Use
  Company Number: US-UCBSA-044819

PATIENT
  Age: 39 Year
  Sex: Female

DRUGS (15)
  1. CLORAZEPATE DIPOTASSIUM [Concomitant]
     Route: 048
  2. MULTI-VITAMIN [Concomitant]
     Route: 048
  3. TRILEPTAL [Concomitant]
     Dosage: 600 MG-1 AND A HALF TAB TWICE DAILY
     Route: 048
  4. LEVOTHYROXINE SODIUM [Concomitant]
     Route: 048
  5. ZONEGRAN [Concomitant]
     Dosage: 7 TABS AT BEDTIME
     Route: 048
  6. KEPPRA [Concomitant]
     Dosage: 3 TABS IN AM, 3 TABS IN PM
  7. VIMPAT [Suspect]
  8. CALCIUM 500 WITH D [Concomitant]
     Dosage: CALCIUM 500 WITH D 600 MG
  9. LEXAPRO [Concomitant]
     Route: 048
  10. ATIVAN [Concomitant]
     Dosage: 1 MG 2 TABS
     Route: 048
  11. TRILEPTAL [Concomitant]
     Dosage: FORM STRENGTH: 600 MG
     Route: 048
     Dates: start: 20090522
  12. VIMPAT [Suspect]
     Indication: PARTIAL SEIZURES
     Dosage: 100 MG-2 TABS
     Route: 048
     Dates: start: 20090101, end: 20090101
  13. FOLIC ACID [Concomitant]
  14. ATIVAN [Concomitant]
     Route: 048
  15. FUROSEMIDE [Concomitant]
     Route: 048

REACTIONS (11)
  - PSYCHOTIC DISORDER [None]
  - CONVULSION [None]
  - MENORRHAGIA [None]
  - FALL [None]
  - DROOLING [None]
  - SOMNOLENCE [None]
  - FRUSTRATION [None]
  - MOOD ALTERED [None]
  - DEPRESSION [None]
  - THERAPEUTIC RESPONSE DECREASED [None]
  - SUICIDAL IDEATION [None]
